FAERS Safety Report 11041736 (Version 3)
Quarter: 2015Q4

REPORT INFORMATION
  Report Type: Report from Study
  Country: US (occurrence: US)
  Receive Date: 20150416
  Receipt Date: 20151009
  Transmission Date: 20160304
  Serious: No
  Sender: FDA-Public Use
  Company Number: US-SA-2015SA047803

PATIENT
  Age: 60 Year
  Sex: Female

DRUGS (9)
  1. KYNAMRO [Suspect]
     Active Substance: MIPOMERSEN SODIUM
     Indication: TYPE IIA HYPERLIPIDAEMIA
     Route: 058
     Dates: start: 201411, end: 20150810
  2. TOPROL XL [Concomitant]
     Active Substance: METOPROLOL SUCCINATE
     Indication: CORONARY ARTERY DISEASE
     Dates: start: 20130910
  3. NIACIN. [Concomitant]
     Active Substance: NIACIN
     Indication: CORONARY ARTERY DISEASE
     Dosage: 500 MG/1000 MG
     Route: 048
     Dates: start: 20150427
  4. VITAMINS NOS [Concomitant]
     Active Substance: VITAMINS
  5. TOPROL XL [Concomitant]
     Active Substance: METOPROLOL SUCCINATE
     Indication: HEART RATE
     Dates: start: 20130910
  6. NIACIN. [Concomitant]
     Active Substance: NIACIN
     Indication: BLOOD CHOLESTEROL INCREASED
     Dosage: 500 MG/1000 MG
     Route: 048
     Dates: start: 20150427
  7. KYNAMRO [Suspect]
     Active Substance: MIPOMERSEN SODIUM
     Indication: DYSLIPIDAEMIA
     Route: 058
     Dates: start: 201411, end: 20150810
  8. NITROGLYCERINE [Concomitant]
     Active Substance: NITROGLYCERIN
     Indication: CHEST PAIN
     Route: 060
  9. ASA [Concomitant]
     Active Substance: ASPIRIN
     Indication: CORONARY ARTERY DISEASE
     Route: 048
     Dates: start: 20130910

REACTIONS (6)
  - Urticaria [Recovered/Resolved]
  - Rash [Recovered/Resolved]
  - Injection site pain [Recovering/Resolving]
  - Hepatic enzyme increased [Not Recovered/Not Resolved]
  - Dyspnoea [Recovered/Resolved]
  - Injection site scar [Recovering/Resolving]

NARRATIVE: CASE EVENT DATE: 20150327
